FAERS Safety Report 21929116 (Version 6)
Quarter: 2024Q4

REPORT INFORMATION
  Report Type: Spontaneous
  Country: JP (occurrence: JP)
  Receive Date: 20230131
  Receipt Date: 20241226
  Transmission Date: 20250115
  Serious: Yes (Hospitalization, Other)
  Sender: JOHNSON AND JOHNSON
  Company Number: JP-JNJFOC-20230152353

PATIENT
  Age: 74 Year
  Sex: Male
  Weight: 66 kg

DRUGS (20)
  1. UPTRAVI [Suspect]
     Active Substance: SELEXIPAG
     Indication: Pulmonary arterial hypertension
     Route: 048
     Dates: start: 20221221, end: 20230115
  2. UPTRAVI [Suspect]
     Active Substance: SELEXIPAG
     Route: 048
     Dates: start: 20230116, end: 202301
  3. UPTRAVI [Suspect]
     Active Substance: SELEXIPAG
     Route: 048
     Dates: start: 20230123, end: 202407
  4. UPTRAVI [Suspect]
     Active Substance: SELEXIPAG
     Route: 048
     Dates: start: 20221201
  5. UPTRAVI [Suspect]
     Active Substance: SELEXIPAG
     Route: 048
  6. OPSUMIT [Suspect]
     Active Substance: MACITENTAN
     Indication: Pulmonary arterial hypertension
     Route: 048
     Dates: start: 20221213, end: 202301
  7. OPSUMIT [Suspect]
     Active Substance: MACITENTAN
     Route: 048
     Dates: start: 20230124
  8. OPSUMIT [Suspect]
     Active Substance: MACITENTAN
     Route: 048
     Dates: start: 20221201
  9. OPSUMIT [Suspect]
     Active Substance: MACITENTAN
     Route: 048
  10. NITRIC OXIDE [Concomitant]
     Active Substance: NITRIC OXIDE
     Dosage: UNKNOWN
     Route: 065
  11. NITRIC OXIDE [Concomitant]
     Active Substance: NITRIC OXIDE
     Dosage: DOSE UNKNOWN
     Route: 055
  12. DOBUTAMINE [Concomitant]
     Active Substance: DOBUTAMINE HYDROCHLORIDE
     Dosage: 4 GAMMA
     Route: 042
     Dates: start: 20221114, end: 20221212
  13. DOBUTAMINE [Concomitant]
     Active Substance: DOBUTAMINE HYDROCHLORIDE
     Dosage: 3 GAMMA
     Route: 042
     Dates: start: 20221213, end: 20221220
  14. DOBUTAMINE [Concomitant]
     Active Substance: DOBUTAMINE HYDROCHLORIDE
     Dosage: 2 GAMMA
     Route: 042
     Dates: start: 20221221, end: 20230115
  15. DOBUTAMINE [Concomitant]
     Active Substance: DOBUTAMINE HYDROCHLORIDE
     Dosage: 1 GAMMA
     Route: 042
     Dates: start: 20230116, end: 20230131
  16. TOLVAPTAN [Concomitant]
     Active Substance: TOLVAPTAN
     Route: 065
     Dates: start: 20221114
  17. TOLVAPTAN [Concomitant]
     Active Substance: TOLVAPTAN
     Dates: start: 20221114
  18. TORSEMIDE [Concomitant]
     Active Substance: TORSEMIDE
     Route: 048
     Dates: start: 20221114
  19. SPIRONOLACTONE [Concomitant]
     Active Substance: SPIRONOLACTONE
     Route: 048
     Dates: start: 20221114
  20. ADCIRCA [Concomitant]
     Active Substance: TADALAFIL
     Indication: Pulmonary arterial hypertension
     Dosage: DOSE UNKNOWN
     Route: 048
     Dates: start: 20221201

REACTIONS (7)
  - Pulmonary congestion [Unknown]
  - Atrial tachycardia [Unknown]
  - Left ventricular failure [Unknown]
  - Pulmonary oedema [Unknown]
  - Atrial fibrillation [Unknown]
  - Surgery [Unknown]
  - Refusal of treatment by patient [Unknown]

NARRATIVE: CASE EVENT DATE: 20230101
